FAERS Safety Report 6761704-9 (Version None)
Quarter: 2010Q2

REPORT INFORMATION
  Report Type: 
  Country: None (occurrence: None)
  Receive Date: 20100609
  Receipt Date: 20100602
  Transmission Date: 20101027
  Serious: Yes (Hospitalization)
  Sender: FDA-Public Use
  Company Number: DE-ELI_LILLY_AND_COMPANY-DE201006000457

PATIENT
  Sex: Female

DRUGS (3)
  1. FORTEO [Suspect]
     Indication: OSTEOPOROSIS
     Dates: start: 20090331, end: 20100421
  2. VITAMIN D [Concomitant]
  3. CALCIUM CARBONATE [Concomitant]

REACTIONS (4)
  - APPENDICITIS [None]
  - GASTRITIS [None]
  - NAUSEA [None]
  - VOMITING [None]
